FAERS Safety Report 8433817 (Version 6)
Quarter: 2014Q1

REPORT INFORMATION
  Report Type: Report from Study
  Country: US (occurrence: US)
  Receive Date: 20120229
  Receipt Date: 20140127
  Transmission Date: 20141002
  Serious: Yes (Other)
  Sender: FDA-Public Use
  Company Number: PHEH2012US004576

PATIENT
  Age: 27 Year
  Sex: Female
  Weight: 52 kg

DRUGS (8)
  1. GILENYA [Suspect]
     Indication: RELAPSING-REMITTING MULTIPLE SCLEROSIS
     Dosage: 0.5 MG, QD
     Route: 048
     Dates: start: 20110601, end: 20120223
  2. GILENYA [Suspect]
     Dosage: 0.5 MG, QD
     Route: 048
     Dates: start: 201206
  3. SYNTHROID [Concomitant]
  4. COQ10 [Concomitant]
  5. FISH OIL [Concomitant]
  6. VITAMIN D [Concomitant]
  7. B COMPLEX [Concomitant]
  8. MULTIVITAMIN [Concomitant]

REACTIONS (7)
  - Papillary thyroid cancer [Recovered/Resolved]
  - Neck mass [Recovered/Resolved]
  - Nuclear magnetic resonance imaging abnormal [Unknown]
  - Fatigue [Recovered/Resolved]
  - Multiple sclerosis relapse [Unknown]
  - Visual impairment [Unknown]
  - Tremor [Unknown]
